FAERS Safety Report 26177278 (Version 1)
Quarter: 2025Q4

REPORT INFORMATION
  Report Type: Spontaneous
  Country: IN (occurrence: IN)
  Receive Date: 20251219
  Receipt Date: 20251219
  Transmission Date: 20260117
  Serious: Yes (Life-Threatening, Hospitalization, Other)
  Sender: UNICHEM
  Company Number: IN-UNICHEM LABORATORIES LIMITED-UNI-2025-IN-004146

PATIENT

DRUGS (1)
  1. AMLODIPINE [Suspect]
     Active Substance: AMLODIPINE BESYLATE
     Indication: Product used for unknown indication
     Dosage: 900 MILLIGRAM (90 TABLET)
     Route: 065

REACTIONS (11)
  - Suicide attempt [Unknown]
  - Shock [Recovering/Resolving]
  - Respiratory failure [Recovering/Resolving]
  - Intentional overdose [Unknown]
  - Acute kidney injury [Recovering/Resolving]
  - Ascites [Unknown]
  - Tachypnoea [Recovering/Resolving]
  - Pleural effusion [Recovering/Resolving]
  - Oedema peripheral [Unknown]
  - Hypotension [Recovering/Resolving]
  - Sinus tachycardia [Recovering/Resolving]
